FAERS Safety Report 6728346-2 (Version None)
Quarter: 2010Q2

REPORT INFORMATION
  Report Type: 
  Country: None (occurrence: None)
  Receive Date: 20100517
  Receipt Date: 20100506
  Transmission Date: 20101027
  Serious: Yes (Other)
  Sender: FDA-Public Use
  Company Number: JP-TEVA-231507ISR

PATIENT
  Age: 66 Year
  Sex: Female

DRUGS (2)
  1. CISPLATIN [Suspect]
     Indication: SMALL CELL LUNG CANCER STAGE UNSPECIFIED
     Dosage: DAY 1
  2. ETOPOSIDE [Suspect]
     Indication: SMALL CELL LUNG CANCER STAGE UNSPECIFIED
     Dosage: DAY 1,2,3

REACTIONS (5)
  - ALTERED STATE OF CONSCIOUSNESS [None]
  - CONVULSION [None]
  - HYPONATRAEMIA [None]
  - RENAL SALT-WASTING SYNDROME [None]
  - VOMITING [None]
